FAERS Safety Report 22214600 (Version 1)
Quarter: 2023Q2

REPORT INFORMATION
  Report Type: Report from Study
  Country: US (occurrence: US)
  Receive Date: 20230415
  Receipt Date: 20230415
  Transmission Date: 20230721
  Serious: Yes (Death, Hospitalization, Other)
  Sender: FDA-Public Use
  Company Number: US-ABBVIE-4728857

PATIENT
  Age: 74 Year
  Sex: Male

DRUGS (1)
  1. RINVOQ [Suspect]
     Active Substance: UPADACITINIB
     Indication: Colitis ulcerative
     Route: 048
     Dates: start: 20221019

REACTIONS (12)
  - Death [Fatal]
  - Fall [Unknown]
  - Dehydration [Unknown]
  - Nodule [Unknown]
  - Confusional state [Unknown]
  - Tremor [Unknown]
  - Generalised oedema [Unknown]
  - Hypotension [Unknown]
  - Nasopharyngitis [Unknown]
  - Head injury [Unknown]
  - B-cell lymphoma [Unknown]
  - Malnutrition [Unknown]

NARRATIVE: CASE EVENT DATE: 20230221
